FAERS Safety Report 14565877 (Version 1)
Quarter: 2018Q1

REPORT INFORMATION
  Report Type: Spontaneous
  Country: US (occurrence: US)
  Receive Date: 20180223
  Receipt Date: 20180223
  Transmission Date: 20180509
  Serious: Yes (Death)
  Sender: FDA-Public Use
  Company Number: US-TAIHO ONCOLOGY INC-EU-2018-00214

PATIENT
  Age: 71 Year
  Sex: Female

DRUGS (1)
  1. LONSURF [Suspect]
     Active Substance: TIPIRACIL HYDROCHLORIDE\TRIFLURIDINE
     Indication: METASTATIC NEOPLASM
     Route: 048
     Dates: start: 20171201

REACTIONS (1)
  - Death [Fatal]

NARRATIVE: CASE EVENT DATE: 20180202
